FAERS Safety Report 8770504 (Version 1)
Quarter: 2012Q4

REPORT INFORMATION
  Report Type: 
  Country: JP (occurrence: JP)
  Receive Date: 20120906
  Receipt Date: 20120906
  Transmission Date: 20130627
  Serious: Yes (Other)
  Sender: FDA-Public Use
  Company Number: JP-PFIZER INC-2012216919

PATIENT
  Age: 84 Year
  Sex: Female

DRUGS (1)
  1. LYRICA [Suspect]
     Indication: LUMBAR SPINAL STENOSIS
     Dosage: 150 mg, 2x/day
     Route: 048

REACTIONS (6)
  - Fall [Unknown]
  - Visual acuity reduced [Unknown]
  - Head injury [Unknown]
  - Obesity [Unknown]
  - Muscle rigidity [Unknown]
  - Blood creatinine abnormal [Unknown]
